FAERS Safety Report 7085456-0 (Version None)
Quarter: 2010Q4

REPORT INFORMATION
  Report Type: 
  Country: None (occurrence: None)
  Receive Date: 20101105
  Receipt Date: 20101101
  Transmission Date: 20110411
  Serious: Yes (Hospitalization)
  Sender: FDA-Public Use
  Company Number: US-TEVA-253686USA

PATIENT
  Sex: Female

DRUGS (1)
  1. ACYCLOVIR SODIUM [Suspect]
     Route: 048

REACTIONS (7)
  - ABDOMINAL PAIN [None]
  - DIZZINESS [None]
  - GASTRIC DISORDER [None]
  - IMPAIRED GASTRIC EMPTYING [None]
  - MALAISE [None]
  - NAUSEA [None]
  - VOMITING [None]
